FAERS Safety Report 16433974 (Version 1)
Quarter: 2019Q2

REPORT INFORMATION
  Report Type: Spontaneous
  Country: US (occurrence: US)
  Receive Date: 20190614
  Receipt Date: 20190614
  Transmission Date: 20190711
  Serious: No
  Sender: FDA-Public Use
  Company Number: US-ASTRAZENECA-2019SE74376

PATIENT
  Sex: Female
  Weight: 97.5 kg

DRUGS (3)
  1. HUMALOG [Concomitant]
     Active Substance: INSULIN LISPRO
     Indication: TYPE 2 DIABETES MELLITUS
  2. BYETTA [Suspect]
     Active Substance: EXENATIDE
     Indication: TYPE 2 DIABETES MELLITUS
     Route: 058
  3. BYDUREON BCISE [Suspect]
     Active Substance: EXENATIDE
     Indication: TYPE 2 DIABETES MELLITUS
     Route: 058
     Dates: start: 201811

REACTIONS (4)
  - Injection site mass [Not Recovered/Not Resolved]
  - Glycosylated haemoglobin increased [Unknown]
  - Weight increased [Not Recovered/Not Resolved]
  - Gastrointestinal oedema [Not Recovered/Not Resolved]

NARRATIVE: CASE EVENT DATE: 2018
